FAERS Safety Report 7169729-9 (Version None)
Quarter: 2010Q4

REPORT INFORMATION
  Report Type: 
  Country: None (occurrence: None)
  Receive Date: 20101217
  Receipt Date: 20101214
  Transmission Date: 20110411
  Serious: Yes (Other)
  Sender: FDA-Public Use
  Company Number: US-SANOFI-AVENTIS-2010SA075696

PATIENT
  Age: 74 Year
  Sex: Male

DRUGS (5)
  1. JEVTANA KIT [Suspect]
     Indication: PROSTATE CANCER
     Route: 041
     Dates: start: 20101206, end: 20101206
  2. JEVTANA KIT [Suspect]
     Route: 041
     Dates: start: 20100801, end: 20100801
  3. PEPCID [Concomitant]
     Indication: PREMEDICATION
     Route: 051
     Dates: start: 20101206, end: 20101206
  4. DIPHENHYDRAMINE HYDROCHLORIDE [Concomitant]
     Indication: PREMEDICATION
     Route: 051
     Dates: start: 20101206, end: 20101206
  5. ANZEMET [Concomitant]
     Indication: PREMEDICATION
     Route: 051
     Dates: start: 20101206, end: 20101206

REACTIONS (1)
  - CARDIAC VALVE REPLACEMENT COMPLICATION [None]
